FAERS Safety Report 9369862 (Version 7)
Quarter: 2013Q4

REPORT INFORMATION
  Report Type: Report from Study
  Country: US (occurrence: US)
  Receive Date: 20130626
  Receipt Date: 20131025
  Transmission Date: 20140711
  Serious: Yes (Life-Threatening, Hospitalization, Disabling)
  Sender: FDA-Public Use
  Company Number: US-JNJFOC-20130610526

PATIENT
  Age: 42 Year
  Sex: Male
  Weight: 81.1 kg

DRUGS (20)
  1. BLINDED; INFLIXIMAB, RECOMBINANT [Suspect]
     Indication: CROHN^S DISEASE
     Route: 042
     Dates: start: 20120619
  2. BLINDED; INFLIXIMAB, RECOMBINANT [Suspect]
     Indication: CROHN^S DISEASE
     Route: 042
     Dates: start: 20120427
  3. BLINDED; INFLIXIMAB, RECOMBINANT [Suspect]
     Indication: CROHN^S DISEASE
     Route: 042
     Dates: start: 20121019
  4. BLINDED; INFLIXIMAB, RECOMBINANT [Suspect]
     Indication: CROHN^S DISEASE
     Route: 042
     Dates: start: 20121205
  5. BLINDED; INFLIXIMAB, RECOMBINANT [Suspect]
     Indication: CROHN^S DISEASE
     Route: 042
     Dates: start: 20130130
  6. BLINDED; INFLIXIMAB, RECOMBINANT [Suspect]
     Indication: CROHN^S DISEASE
     Route: 042
     Dates: start: 20130410
  7. BLINDED; INFLIXIMAB, RECOMBINANT [Suspect]
     Indication: CROHN^S DISEASE
     Route: 042
     Dates: start: 20130522, end: 20130522
  8. BLINDED; INFLIXIMAB, RECOMBINANT [Suspect]
     Indication: CROHN^S DISEASE
     Route: 042
     Dates: start: 20120814
  9. PLACEBO [Suspect]
     Indication: CROHN^S DISEASE
     Route: 042
     Dates: start: 20120814
  10. PLACEBO [Suspect]
     Indication: CROHN^S DISEASE
     Route: 042
     Dates: start: 20120619
  11. PLACEBO [Suspect]
     Indication: CROHN^S DISEASE
     Route: 042
     Dates: start: 20120427
  12. PLACEBO [Suspect]
     Indication: CROHN^S DISEASE
     Route: 042
     Dates: start: 20121019
  13. PLACEBO [Suspect]
     Indication: CROHN^S DISEASE
     Route: 042
     Dates: start: 20121205
  14. PLACEBO [Suspect]
     Indication: CROHN^S DISEASE
     Route: 042
     Dates: start: 20130130
  15. PLACEBO [Suspect]
     Indication: CROHN^S DISEASE
     Route: 042
     Dates: start: 20130522, end: 20130522
  16. PLACEBO [Suspect]
     Indication: CROHN^S DISEASE
     Route: 042
     Dates: start: 20130410
  17. PARACETAMOL [Concomitant]
     Indication: PREMEDICATION
     Route: 065
     Dates: start: 20120427
  18. DIPHENHYDRAMINE HYDROCHLORIDE [Concomitant]
     Indication: PREMEDICATION
     Route: 065
     Dates: start: 20120427
  19. CYANOCOBALAMIN [Concomitant]
     Indication: VITAMIN B12 DEFICIENCY
     Route: 065
     Dates: start: 20120702
  20. IMMODIUM [Concomitant]
     Indication: CROHN^S DISEASE
     Route: 065
     Dates: start: 20130205

REACTIONS (1)
  - Cytomegalovirus infection [Recovered/Resolved]
